FAERS Safety Report 4432671-8 (Version None)
Quarter: 2004Q3

REPORT INFORMATION
  Report Type: 
  Country: None (occurrence: None)
  Receive Date: 20040820
  Receipt Date: 20040809
  Transmission Date: 20050211
  Serious: No
  Sender: FDA-Public Use
  Company Number: 2004AP04179

PATIENT
  Age: 35 Year
  Sex: Male

DRUGS (1)
  1. ANAPEINE [Suspect]
     Indication: EPIDURAL ANAESTHESIA
     Dosage: 13 ML ONCE ED
     Route: 008
     Dates: start: 20040804, end: 20040804

REACTIONS (2)
  - BLOOD PRESSURE DECREASED [None]
  - CONVULSION [None]
